FAERS Safety Report 6565265-9 (Version None)
Quarter: 2010Q1

REPORT INFORMATION
  Report Type: 
  Country: None (occurrence: None)
  Receive Date: 20100201
  Receipt Date: 20100128
  Transmission Date: 20100710
  Serious: Yes (Death)
  Sender: FDA-Public Use
  Company Number: US-ROCHE-673248

PATIENT
  Sex: Male
  Weight: 74.8 kg

DRUGS (5)
  1. CAPECITABINE [Suspect]
     Route: 048
     Dates: start: 20091006
  2. ATIVAN [Concomitant]
     Indication: ANXIETY
     Dosage: FREQUENCY REPORTED AS Q4PM
     Route: 048
     Dates: start: 20081101
  3. COMPAZINE [Concomitant]
     Dosage: FREQUENCY: Q4-6  PM, INDICATION: NIV
     Route: 048
     Dates: start: 20081101
  4. OXYPAN [Concomitant]
     Indication: PAIN
     Dosage: ROUTE REPORTED: ORAL/SUBCUTANEOUS, FREQUENCY: Q 7 HOURS PM, STRENGTH: 20 MG/ML
     Route: 050
     Dates: start: 20091101
  5. OXYCONTIN [Concomitant]
     Indication: PAIN
     Route: 048
     Dates: start: 20091101

REACTIONS (1)
  - MALIGNANT NEOPLASM PROGRESSION [None]
